FAERS Safety Report 23470264 (Version 1)
Quarter: 2024Q1

REPORT INFORMATION
  Report Type: Spontaneous
  Country: US (occurrence: None)
  Receive Date: 20240202
  Receipt Date: 20240202
  Transmission Date: 20240410
  Serious: Yes (Hospitalization)
  Sender: FDA-Public Use
  Company Number: None

PATIENT
  Age: 44 Year
  Sex: Male
  Weight: 106 kg

DRUGS (4)
  1. CISPLATIN [Suspect]
     Active Substance: CISPLATIN
     Dates: end: 20190714
  2. FILGRASTIM [Suspect]
     Active Substance: FILGRASTIM
     Dates: end: 20190718
  3. IFOSFAMIDE [Suspect]
     Active Substance: IFOSFAMIDE
     Dates: end: 20190714
  4. PACLITAXEL [Suspect]
     Active Substance: PACLITAXEL
     Dates: end: 20190710

REACTIONS (5)
  - Tachycardia [None]
  - Pyrexia [None]
  - Escherichia infection [None]
  - Enterococcal infection [None]
  - Neutropenia [None]

NARRATIVE: CASE EVENT DATE: 20190719
